FAERS Safety Report 11893371 (Version 1)
Quarter: 2016Q1

REPORT INFORMATION
  Report Type: Other
  Country: CA (occurrence: CA)
  Receive Date: 20160106
  Receipt Date: 20160106
  Transmission Date: 20160526
  Serious: Yes (Hospitalization, Congenital Anomaly)
  Sender: FDA-Public Use
  Company Number: CA-ENDO PHARMACEUTICALS INC-2015-005208

PATIENT
  Age: 17 Day
  Sex: Female

DRUGS (1)
  1. PROPYLTHIOURACIL TABLETS 50 MG [Suspect]
     Active Substance: PROPYLTHIOURACIL
     Indication: BASEDOW^S DISEASE

REACTIONS (3)
  - Congenital intestinal obstruction [Recovered/Resolved]
  - Congenital intestinal malformation [Recovered/Resolved]
  - Foetal exposure during pregnancy [Recovered/Resolved]
